FAERS Safety Report 8919801 (Version 1)
Quarter: 2012Q4

REPORT INFORMATION
  Report Type: 
  Country: US (occurrence: US)
  Receive Date: 20121121
  Receipt Date: 20121121
  Transmission Date: 20130627
  Serious: Yes (Hospitalization, Other)
  Sender: FDA-Public Use
  Company Number: US-VIROPHARMA INCORPORATED-20121116CINRY3650

PATIENT
  Age: 41 Year
  Sex: Female

DRUGS (1)
  1. CINRYZE (C1 ESTERASE INHIBITOR (HUMAN)) [Suspect]
     Indication: HEREDITARY ANGIOEDEMA
     Dosage: unknown

REACTIONS (3)
  - Abdominal pain [Unknown]
  - Drug dependence [Not Recovered/Not Resolved]
  - Drug dose omission [Not Recovered/Not Resolved]
